FAERS Safety Report 9657806 (Version 1)
Quarter: 2013Q4

REPORT INFORMATION
  Report Type: Spontaneous
  Country: GB (occurrence: GB)
  Receive Date: 20131030
  Receipt Date: 20131030
  Transmission Date: 20140711
  Serious: Yes (Hospitalization)
  Sender: FDA-Public Use
  Company Number: PHHY2013GB120112

PATIENT
  Age: 77 Year
  Sex: Male

DRUGS (12)
  1. LISINOPRIL [Suspect]
     Indication: HYPERTENSION
     Dosage: 1.25 MG, QD
     Route: 048
     Dates: start: 201308, end: 20131004
  2. ACETYLSALICYLIC ACID [Suspect]
     Indication: CEREBROVASCULAR ACCIDENT PROPHYLAXIS
     Dosage: 75 MG, QD
     Route: 048
     Dates: start: 2009, end: 20131004
  3. AMLODIPINE [Concomitant]
     Indication: HYPERTENSION
     Dosage: 5 MG, QD
     Route: 048
  4. ATENOLOL [Concomitant]
     Indication: HYPERTENSION
     Dosage: 25 MG, QD
     Route: 048
  5. DOCUSATE [Concomitant]
     Indication: CONSTIPATION
     Dosage: 100 MG, BID
     Route: 048
  6. CARBOCISTEINE [Concomitant]
     Dosage: 375 MG, TID (MUCOLYTIC)
     Route: 048
  7. LACTULOSE [Concomitant]
     Indication: CONSTIPATION
     Dosage: 15 ML, BID
     Route: 048
  8. METFORMIN [Concomitant]
     Indication: TYPE 2 DIABETES MELLITUS
     Dosage: 1 G, BID (AFTER MEALS)
     Route: 048
  9. MIRTAZAPINE [Concomitant]
     Indication: DEPRESSION
     Dosage: 30 MG, QD (AT NIGHT)
     Route: 048
  10. PARACETAMOL [Concomitant]
     Indication: ANALGESIC THERAPY
     Dosage: 1 G, QID (EACH DOSE TAKEN 4 TO 6 HOURS APART)
     Route: 048
  11. SENNA [Concomitant]
     Indication: CONSTIPATION
     Dosage: 15 MG, (AT NIGHT, AS NEEDED)
     Route: 048
  12. SIMVASTATIN [Concomitant]
     Indication: CARDIOVASCULAR EVENT PROPHYLAXIS
     Dosage: 20 MG, QD (AT NIGHT)
     Route: 048

REACTIONS (1)
  - Hyperkalaemia [Recovered/Resolved]
